FAERS Safety Report 6701604-3 (Version None)
Quarter: 2010Q2

REPORT INFORMATION
  Report Type: 
  Country: None (occurrence: None)
  Receive Date: 20100429
  Receipt Date: 20100416
  Transmission Date: 20101027
  Serious: Yes (Hospitalization, Other)
  Sender: FDA-Public Use
  Company Number: US-ELI_LILLY_AND_COMPANY-US201004004679

PATIENT
  Sex: Female

DRUGS (2)
  1. BYETTA [Suspect]
     Indication: TYPE 2 DIABETES MELLITUS
     Dosage: 10 UG, 2/D
     Route: 058
     Dates: end: 20100416
  2. METFORMIN [Concomitant]
     Indication: DIABETES MELLITUS

REACTIONS (3)
  - BLOOD TRIGLYCERIDES INCREASED [None]
  - OBESITY [None]
  - PANCREATITIS [None]
